FAERS Safety Report 6303937-1 (Version None)
Quarter: 2009Q3

REPORT INFORMATION
  Report Type: 
  Country: None (occurrence: None)
  Receive Date: 20090805
  Receipt Date: 20090720
  Transmission Date: 20100115
  Serious: Yes (Hospitalization)
  Sender: FDA-Public Use
  Company Number: DSA_34081_2009

PATIENT
  Sex: Female

DRUGS (2)
  1. BI-TILDIEM       (BI-TILDIEM - DILTIAZEM HYDROCHLORIDE) 90 MG (NOT SPE [Suspect]
     Indication: DRUG USE FOR UNKNOWN INDICATION
     Dosage: (90 GM BID ORAL)
     Route: 048
     Dates: end: 20090618
  2. CARDENSIEL [Concomitant]

REACTIONS (3)
  - CARDIAC FAILURE [None]
  - DYSPNOEA [None]
  - OEDEMA PERIPHERAL [None]
